FAERS Safety Report 9490369 (Version 2)
Quarter: 2013Q3

REPORT INFORMATION
  Report Type: Spontaneous
  Country: US (occurrence: US)
  Receive Date: 20130830
  Receipt Date: 20130830
  Transmission Date: 20140515
  Serious: No
  Sender: FDA-Public Use
  Company Number: US-009507513-1302USA005436

PATIENT
  Sex: Female
  Weight: 146.94 kg

DRUGS (1)
  1. NEXPLANON [Suspect]
     Dosage: UNK
     Route: 059
     Dates: start: 20130205

REACTIONS (3)
  - Nausea [Unknown]
  - Device kink [Unknown]
  - Device breakage [Unknown]
